FAERS Safety Report 8296664-5 (Version None)
Quarter: 2012Q2

REPORT INFORMATION
  Report Type: 
  Country: None (occurrence: None)
  Receive Date: 20120418
  Receipt Date: 20120418
  Transmission Date: 20120825
  Serious: Yes (Other)
  Sender: FDA-Public Use
  Company Number: None

PATIENT
  Age: 48 Year
  Sex: Female
  Weight: 48.987 kg

DRUGS (1)
  1. MIRENA [Suspect]

REACTIONS (4)
  - STRESS [None]
  - EMOTIONAL DISORDER [None]
  - MENORRHAGIA [None]
  - MENTAL DISORDER [None]
